FAERS Safety Report 5047171-4 (Version None)
Quarter: 2006Q2

REPORT INFORMATION
  Report Type: 
  Country: None (occurrence: None)
  Receive Date: 20060630
  Receipt Date: 20060623
  Transmission Date: 20061013
  Serious: Yes (Other)
  Sender: FDA-Public Use
  Company Number: CHPA2006US06140

PATIENT
  Age: 53 Year
  Sex: Female
  Weight: 36.3 kg

DRUGS (2)
  1. EXCEDRIN (MIGRAINE) [Suspect]
     Indication: HEADACHE
     Dosage: QD, ORAL
     Route: 048
  2. DILANTIN [Suspect]

REACTIONS (4)
  - DRUG ABUSER [None]
  - DRUG HYPERSENSITIVITY [None]
  - DRUG INTERACTION [None]
  - RASH PRURITIC [None]
